FAERS Safety Report 7600057-0 (Version None)
Quarter: 2011Q3

REPORT INFORMATION
  Report Type: 
  Country: None (occurrence: None)
  Receive Date: 20110711
  Receipt Date: 20110624
  Transmission Date: 20111222
  Serious: Yes (Other)
  Sender: FDA-Public Use
  Company Number: DE-JNJFOC-20110406964

PATIENT
  Sex: Female
  Weight: 71.3 kg

DRUGS (8)
  1. IRBESARTAN + HYDROCHLOROTHIAZIDE [Concomitant]
  2. TAPENTADOL [Suspect]
     Route: 048
     Dates: start: 20101101, end: 20101130
  3. TAPENTADOL [Suspect]
     Indication: BACK PAIN
     Route: 048
     Dates: start: 20101029, end: 20101101
  4. PREGABALIN [Concomitant]
  5. IBUPROFEN [Concomitant]
  6. BUPRENORPHINE [Concomitant]
     Route: 065
  7. ANTIEMETICS AND ANTINAUSEANTS [Concomitant]
  8. OMEPRAZOLE [Concomitant]

REACTIONS (1)
  - LIP ULCERATION [None]
